FAERS Safety Report 8445031-X (Version None)
Quarter: 2012Q2

REPORT INFORMATION
  Report Type: 
  Country: None (occurrence: None)
  Receive Date: 20120618
  Receipt Date: 20120613
  Transmission Date: 20120825
  Serious: Yes (Hospitalization)
  Sender: FDA-Public Use
  Company Number: FR-ROCHE-1071742

PATIENT
  Sex: Female
  Weight: 54.5 kg

DRUGS (4)
  1. CYCLOPHOSPHAMIDE [Suspect]
     Indication: NEOPLASM MALIGNANT
     Dosage: DOSAGE FORM: 17 MG/M2, DATE OF LAST DOSE: 14 MAY 2012
     Route: 048
     Dates: start: 20120315
  2. VINORELBINE TARTRATE [Suspect]
     Indication: NEOPLASM MALIGNANT
     Dosage: DOSAGE FORM: 17 MG/M2, DATE OF LAST DOSE: 14 MAY 2012
     Route: 042
     Dates: start: 20120315
  3. LUTENYL [Concomitant]
     Dates: start: 20110801
  4. AVASTIN [Suspect]
     Indication: NEOPLASM MALIGNANT
     Dosage: DOSAGE FORM: 5 MG/KG, DATE OF LAST DOSE: 14 MAY 2012, TEMPORARILY INTERRUPTED.
     Route: 042
     Dates: start: 20110801, end: 20120515

REACTIONS (1)
  - DEVICE DISLOCATION [None]
